FAERS Safety Report 9641769 (Version 3)
Quarter: 2014Q3

REPORT INFORMATION
  Report Type: Spontaneous
  Country: DK (occurrence: None)
  Receive Date: 20131021
  Receipt Date: 20140925
  Transmission Date: 20150326
  Serious: Yes (Hospitalization, Disabling)
  Sender: FDA-Public Use
  Company Number: 1955889

PATIENT
  Age: 62 Year
  Sex: Female
  Weight: 92 kg

DRUGS (2)
  1. CAPECITABINE [Suspect]
     Active Substance: CAPECITABINE
     Indication: COLORECTAL CANCER
     Dosage: UNKNOWN, UNKNOWN, UNKNOWN
     Route: 048
     Dates: start: 20121114, end: 20130416
  2. OXALIPLATIN. [Suspect]
     Active Substance: OXALIPLATIN
     Indication: COLORECTAL CANCER
     Dosage: UNKNOWN, UNKNOWN, UNKNOWN
     Route: 042
     Dates: start: 20121114, end: 20130305

REACTIONS (12)
  - Myalgia [None]
  - Activities of daily living impaired [None]
  - Muscular weakness [None]
  - Dizziness [None]
  - Metastases to peritoneum [None]
  - Polymyositis [None]
  - Myopathy [None]
  - Myopathy toxic [None]
  - Neuralgia [None]
  - Fall [None]
  - Myositis [None]
  - Neuropathy peripheral [None]
